FAERS Safety Report 19507173 (Version 3)
Quarter: 2021Q3

REPORT INFORMATION
  Report Type: Report from Study
  Country: US (occurrence: US)
  Receive Date: 20210708
  Receipt Date: 20210907
  Transmission Date: 20211014
  Serious: Yes (Other)
  Sender: FDA-Public Use
  Company Number: NVSC2021US148574

PATIENT
  Sex: Female

DRUGS (2)
  1. COSENTYX [Suspect]
     Active Substance: SECUKINUMAB
     Indication: ANKYLOSING SPONDYLITIS
     Dosage: UNK, QW
     Route: 058
  2. COSENTYX [Suspect]
     Active Substance: SECUKINUMAB
     Dosage: 300 MG, QW
     Route: 058
     Dates: start: 20210721

REACTIONS (8)
  - Vomiting [Unknown]
  - Headache [Unknown]
  - Abdominal discomfort [Unknown]
  - Back pain [Unknown]
  - Stress [Unknown]
  - Nausea [Unknown]
  - Ankylosing spondylitis [Unknown]
  - Oesophageal disorder [Unknown]
